FAERS Safety Report 21936426 (Version 1)
Quarter: 2023Q1

REPORT INFORMATION
  Report Type: Report from Study
  Country: US (occurrence: US)
  Receive Date: 20230201
  Receipt Date: 20230201
  Transmission Date: 20230417
  Serious: No
  Sender: FDA-Public Use
  Company Number: US-INCYTE CORPORATION-2020IN007228

PATIENT

DRUGS (1)
  1. PEMIGATINIB [Suspect]
     Active Substance: PEMIGATINIB
     Indication: Cholangiocarcinoma
     Dosage: 13.5 MILLIGRAM, QPM (14 DAYS ON/7 DAYS OFF) W/O FOOD
     Route: 048
     Dates: start: 20200707

REACTIONS (12)
  - Lip pain [Unknown]
  - Nasal dryness [Unknown]
  - Pain [Unknown]
  - Renal function test abnormal [Unknown]
  - White blood cell count increased [Unknown]
  - Carbohydrate antigen 19-9 increased [Unknown]
  - Asthenia [Unknown]
  - Abdominal pain [Unknown]
  - Platelet count decreased [Unknown]
  - Dry mouth [Unknown]
  - Diarrhoea [Unknown]
  - Constipation [Unknown]
